FAERS Safety Report 17217465 (Version 1)
Quarter: 2019Q4

REPORT INFORMATION
  Report Type: Spontaneous
  Country: NL (occurrence: NL)
  Receive Date: 20191231
  Receipt Date: 20191231
  Transmission Date: 20200122
  Serious: Yes (Other)
  Sender: FDA-Public Use
  Company Number: NL-UCBSA-2019056246

PATIENT
  Sex: Female

DRUGS (2)
  1. BRIVIACT [Suspect]
     Active Substance: BRIVARACETAM
     Indication: EPILEPSY
     Dosage: 50 MG
  2. BRIVIACT [Suspect]
     Active Substance: BRIVARACETAM
     Dosage: DOSE REDUCED

REACTIONS (2)
  - Intentional product misuse [Unknown]
  - Epilepsy [Unknown]
